FAERS Safety Report 15548486 (Version 1)
Quarter: 2018Q4

REPORT INFORMATION
  Report Type: Report from Study
  Country: US (occurrence: US)
  Receive Date: 20181025
  Receipt Date: 20181025
  Transmission Date: 20190205
  Serious: No
  Sender: FDA-Public Use
  Company Number: US-IPSEN BIOPHARMACEUTICALS, INC.-2017-09667

PATIENT
  Sex: Male
  Weight: 34 kg

DRUGS (7)
  1. NUTROPIN AQ [Suspect]
     Active Substance: SOMATROPIN
     Indication: GROWTH HORMONE DEFICIENCY
     Route: 058
     Dates: start: 20141108
  2. SINGULAIR [Concomitant]
     Active Substance: MONTELUKAST SODIUM
  3. NUTROPIN AQ [Suspect]
     Active Substance: SOMATROPIN
     Route: 058
  4. ZYRTEC [Concomitant]
     Active Substance: CETIRIZINE HYDROCHLORIDE
  5. ALBUTEROL. [Concomitant]
     Active Substance: ALBUTEROL
  6. NUTROPIN AQ [Suspect]
     Active Substance: SOMATROPIN
     Dosage: DOSE: 1.2 TO 1.4 MG
     Route: 058
  7. SYMBICORT [Concomitant]
     Active Substance: BUDESONIDE\FORMOTEROL FUMARATE DIHYDRATE

REACTIONS (5)
  - Speech disorder [Unknown]
  - Headache [Unknown]
  - Asthma [Unknown]
  - Varicocele [Unknown]
  - Abdominal pain upper [Unknown]
